FAERS Safety Report 10008912 (Version 1)
Quarter: 2014Q1

REPORT INFORMATION
  Report Type: Spontaneous
  Country: US (occurrence: US)
  Receive Date: 20140313
  Receipt Date: 20140313
  Transmission Date: 20141002
  Serious: Yes (Other)
  Sender: FDA-Public Use
  Company Number: US-INCYTE CORPORATION-2012IN001120

PATIENT
  Age: 86 Year
  Sex: Female

DRUGS (8)
  1. JAKAFI [Suspect]
     Indication: BLOOD DISORDER
     Dosage: 15 MG, BID
     Route: 048
  2. EVISTA [Concomitant]
     Dosage: 60 MG, QD
  3. TOPROL XL [Concomitant]
     Dosage: 50 MG, QD
  4. LISINOPRIL/HCTZ [Concomitant]
     Dosage: UNK, QD
  5. SIMVASTATIN [Concomitant]
     Dosage: 40 MG, QD (QHS)
  6. METFORMIN [Concomitant]
     Dosage: 1500 MG, QD (2 TABS IN AM, 1 TAB IN PM)
  7. B12 [Concomitant]
     Dosage: UNK, QD
  8. ASPIRIN [Concomitant]
     Dosage: 81 MG, QD

REACTIONS (1)
  - Blood count abnormal [Unknown]
